FAERS Safety Report 16839347 (Version 1)
Quarter: 2019Q3

REPORT INFORMATION
  Report Type: Spontaneous
  Country: US (occurrence: US)
  Receive Date: 20190923
  Receipt Date: 20190923
  Transmission Date: 20191005
  Serious: No
  Sender: FDA-Public Use
  Company Number: US-PFIZER INC-2019317891

PATIENT
  Age: 69 Year
  Sex: Female
  Weight: 74.84 kg

DRUGS (2)
  1. LYRICA [Suspect]
     Active Substance: PREGABALIN
     Indication: FIBROMYALGIA
     Dosage: 200 MG, 3X/DAY
     Route: 048
  2. ATORVASTATIN [Concomitant]
     Active Substance: ATORVASTATIN
     Indication: BLOOD CHOLESTEROL ABNORMAL
     Dosage: 40 MG, DAILY

REACTIONS (10)
  - Back disorder [Unknown]
  - Off label use [Unknown]
  - Balance disorder [Unknown]
  - Ecchymosis [Unknown]
  - Fall [Unknown]
  - Spinal stenosis [Unknown]
  - Arthropathy [Unknown]
  - Feeling abnormal [Unknown]
  - Product use issue [Unknown]
  - Joint swelling [Unknown]
